FAERS Safety Report 12902533 (Version 1)
Quarter: 2016Q4

REPORT INFORMATION
  Report Type: Report from Study
  Country: DE (occurrence: DE)
  Receive Date: 20161102
  Receipt Date: 20161102
  Transmission Date: 20170207
  Serious: No
  Sender: FDA-Public Use
  Company Number: DE-VIIV HEALTHCARE LIMITED-B1004700B

PATIENT
  Sex: Male
  Weight: 65 kg

DRUGS (2)
  1. DOLUTEGRAVIR [Suspect]
     Active Substance: DOLUTEGRAVIR
     Indication: HIV INFECTION
     Route: 048
     Dates: start: 20140410
  2. ABACAVIR SULFATE + LAMIVUDINE [Suspect]
     Active Substance: ABACAVIR SULFATE\LAMIVUDINE
     Indication: HIV INFECTION
     Dosage: 600/300MG
     Route: 048
     Dates: start: 20140410

REACTIONS (1)
  - Anxiety disorder [Recovered/Resolved]

NARRATIVE: CASE EVENT DATE: 20140819
